FAERS Safety Report 11865013 (Version 2)
Quarter: 2016Q3

REPORT INFORMATION
  Report Type: Spontaneous
  Country: US (occurrence: US)
  Receive Date: 20151223
  Receipt Date: 20160915
  Transmission Date: 20161109
  Serious: No
  Sender: FDA-Public Use
  Company Number: US-PFIZER INC-2015410060

PATIENT
  Age: 75 Year
  Sex: Female

DRUGS (18)
  1. HYZAAR [Concomitant]
     Active Substance: HYDROCHLOROTHIAZIDE\LOSARTAN POTASSIUM
     Dosage: 1 DF, DAILY
     Route: 048
  2. MULTIVITAMIN + MINERAL [Concomitant]
  3. MORPHINE SULFATE. [Suspect]
     Active Substance: MORPHINE SULFATE
     Dosage: UNK
  4. NORVASC [Concomitant]
     Active Substance: AMLODIPINE BESYLATE
     Dosage: 10 MG, DAILY
     Route: 048
  5. NEXIUM [Concomitant]
     Active Substance: ESOMEPRAZOLE MAGNESIUM
     Dosage: 1 DF, 1X/DAY (EVERY MORNING BEFORE BREAKFAST)
     Route: 048
  6. NORCO [Concomitant]
     Active Substance: ACETAMINOPHEN\HYDROCODONE BITARTRATE
     Indication: PAIN
     Dosage: 1 DF, AS NEEDED (EVERY 6 HOURS, FREQ: AS NEEDED)
     Route: 048
  7. PROBIOTIC [Concomitant]
     Active Substance: PROBIOTICS NOS
     Dosage: UNK, 2X/DAY
     Route: 048
  8. TYLENOL [Concomitant]
     Active Substance: ACETAMINOPHEN
     Indication: PAIN
     Dosage: 500 MG, AS NEEDED (500 MG, EVERY 6 HOURS, FREQ: AS NEEDED)
     Route: 048
  9. CARAFATE [Concomitant]
     Active Substance: SUCRALFATE
     Dosage: 1 G, 4X/DAY
     Route: 048
  10. ZOLOFT [Concomitant]
     Active Substance: SERTRALINE HYDROCHLORIDE
     Dosage: 1 DF, 1X/DAY
     Route: 048
  11. HYDROMORPHONE HYDROCHLORIDE. [Suspect]
     Active Substance: HYDROMORPHONE HYDROCHLORIDE
     Dosage: UNK
  12. COQ 10 [Concomitant]
     Active Substance: UBIDECARENONE
     Dosage: UNK, DAILY
     Route: 048
  13. IBRANCE [Concomitant]
     Active Substance: PALBOCICLIB
     Dosage: 1 DF, DAILY (DAILY WITH BREAKFAST THREE OUT OF EVERY FOUR WEEKS)
     Route: 048
  14. VITAMIN D [Concomitant]
     Active Substance: CHOLECALCIFEROL
     Dosage: UNK, DAILY
     Route: 048
  15. NEXIUM [Concomitant]
     Active Substance: ESOMEPRAZOLE MAGNESIUM
     Dosage: 40 MG, UNK (PATIENT TAKING DIFFERENTLY, FREQ: 2 DAY; INTERVAL: 1)
     Route: 048
  16. FLAXSEED [Concomitant]
     Active Substance: FLAX SEED
     Dosage: UNK, DAILY
     Route: 048
  17. FEMARA [Concomitant]
     Active Substance: LETROZOLE
     Dosage: 1 DF, DAILY
     Route: 048
  18. EMLA [Concomitant]
     Active Substance: LIDOCAINE\PRILOCAINE
     Dosage: UNK (APPLY TO MEDI PORT SITE 30 MINUTES PRIOR TO ACCESS)

REACTIONS (2)
  - Nausea [Unknown]
  - Vomiting [Unknown]
